FAERS Safety Report 7370227-8 (Version None)
Quarter: 2011Q1

REPORT INFORMATION
  Report Type: 
  Country: None (occurrence: None)
  Receive Date: 20110323
  Receipt Date: 20110310
  Transmission Date: 20110831
  Serious: Yes (Other)
  Sender: FDA-Public Use
  Company Number: PHHY2011CA19995

PATIENT
  Sex: Female

DRUGS (4)
  1. ACLASTA [Suspect]
     Dosage: UNK
     Dates: start: 20091117
  2. ACLASTA [Suspect]
     Dosage: UNK
     Dates: start: 20101115
  3. ACETAMINOPHEN [Concomitant]
  4. ACLASTA [Suspect]
     Indication: OSTEOPOROSIS
     Dosage: UNK
     Dates: start: 20081211

REACTIONS (2)
  - EAR PAIN [None]
  - PAIN IN JAW [None]
